FAERS Safety Report 4547089-7 (Version None)
Quarter: 2005Q1

REPORT INFORMATION
  Report Type: 
  Country: None (occurrence: None)
  Receive Date: 20050105
  Receipt Date: 20041223
  Transmission Date: 20050727
  Serious: Yes (Hospitalization, Other)
  Sender: FDA-Public Use
  Company Number: 2004US001435

PATIENT

DRUGS (1)
  1. ADENOSCAN [Suspect]
     Indication: SCAN MYOCARDIAL PERFUSION
     Dosage: 140.00 RK/MIN, TOTAL DOSE, INTRAVENOUS
     Route: 042
     Dates: start: 20041118, end: 20041118

REACTIONS (5)
  - BRONCHOSPASM [None]
  - DYSPNOEA [None]
  - LOSS OF CONSCIOUSNESS [None]
  - RESPIRATORY ARREST [None]
  - TRISMUS [None]
